FAERS Safety Report 6794830-9 (Version None)
Quarter: 2010Q2

REPORT INFORMATION
  Report Type: 
  Country: None (occurrence: None)
  Receive Date: 20100625
  Receipt Date: 20100623
  Transmission Date: 20101027
  Serious: Yes (Death)
  Sender: FDA-Public Use
  Company Number: US-ASTRAZENECA-2010SE29316

PATIENT
  Age: 657 Month
  Sex: Female

DRUGS (5)
  1. SEROQUEL [Suspect]
     Indication: DEPRESSION
     Dosage: 200 MG 2 X DAY
     Route: 048
     Dates: start: 20020301, end: 20060401
  2. RISPERDAL [Concomitant]
  3. ZYPREXA [Concomitant]
  4. LIPITOR [Concomitant]
     Indication: BLOOD CHOLESTEROL INCREASED
  5. LIPITOR [Concomitant]
     Indication: HYPERLIPIDAEMIA

REACTIONS (2)
  - NON-SMALL CELL LUNG CANCER METASTATIC [None]
  - TYPE 2 DIABETES MELLITUS [None]
